FAERS Safety Report 6077851-3 (Version None)
Quarter: 2009Q1

REPORT INFORMATION
  Report Type: 
  Country: None (occurrence: None)
  Receive Date: 20090211
  Receipt Date: 20090108
  Transmission Date: 20090719
  Serious: Yes (Death)
  Sender: FDA-Public Use
  Company Number: 1000003743

PATIENT
  Age: 21 Year
  Sex: Male

DRUGS (2)
  1. ESCITALOPRAM [Suspect]
  2. QUETIAPINE FUMARATE [Suspect]

REACTIONS (2)
  - COMPLETED SUICIDE [None]
  - INTENTIONAL OVERDOSE [None]
